FAERS Safety Report 4439083-1 (Version None)
Quarter: 2004Q3

REPORT INFORMATION
  Report Type: 
  Country: None (occurrence: None)
  Receive Date: 20040901
  Receipt Date: 20040820
  Transmission Date: 20050211
  Serious: Yes (Other)
  Sender: FDA-Public Use
  Company Number: JP-BRISTOL-MYERS SQUIBB COMPANY-12686820

PATIENT
  Age: 94 Year
  Sex: Female

DRUGS (5)
  1. GATIFLO TABS 100 MG [Suspect]
     Indication: INFECTION
     Route: 048
  2. DIGITOXIN [Concomitant]
     Route: 048
  3. LASIX [Concomitant]
  4. ZANTAC [Concomitant]
  5. MUCOSTA [Concomitant]
     Route: 048

REACTIONS (2)
  - CONVULSION [None]
  - HYPOGLYCAEMIA [None]
